FAERS Safety Report 8435687-X (Version None)
Quarter: 2012Q2

REPORT INFORMATION
  Report Type: 
  Country: None (occurrence: None)
  Receive Date: 20120608
  Receipt Date: 20120604
  Transmission Date: 20120825
  Serious: Yes (Death, Life-Threatening, Other)
  Sender: FDA-Public Use
  Company Number: 2012SP023552

PATIENT
  Age: 46 Year
  Sex: Female

DRUGS (2)
  1. TEMODAL [Suspect]
     Indication: OLIGODENDROGLIOMA
     Dosage: 190 MG;QD;PO
     Route: 048
     Dates: start: 20060222, end: 20061010
  2. CARMUSTINE [Suspect]
     Indication: OLIGODENDROGLIOMA
     Dosage: 260 MG;ONCE;IV
     Route: 042
     Dates: start: 20060222, end: 20061006

REACTIONS (1)
  - MYELOID LEUKAEMIA [None]
